FAERS Safety Report 6572241-9 (Version None)
Quarter: 2010Q1

REPORT INFORMATION
  Report Type: 
  Country: None (occurrence: None)
  Receive Date: 20100205
  Receipt Date: 20100129
  Transmission Date: 20100710
  Serious: Yes (Hospitalization)
  Sender: FDA-Public Use
  Company Number: PHHO2009IT16106

PATIENT
  Sex: Female
  Weight: 60 kg

DRUGS (5)
  1. CERTICAN [Suspect]
     Indication: RENAL TRANSPLANT
     Dosage: 1.25-1.5 MG
     Route: 048
     Dates: start: 20091004, end: 20100109
  2. NEORAL [Suspect]
     Dosage: 125 MG, QD
     Route: 048
     Dates: start: 20091004, end: 20100109
  3. DELTACORTENE [Suspect]
     Indication: RENAL TRANSPLANT
     Dosage: 5 MG
  4. DELTACORTENE [Suspect]
     Dosage: 10 MG
  5. DIALYSIS [Concomitant]

REACTIONS (4)
  - ARTHRALGIA [None]
  - RASH ERYTHEMATOUS [None]
  - SKIN ULCER [None]
  - STEAL SYNDROME [None]
